FAERS Safety Report 5050440-5 (Version None)
Quarter: 2006Q3

REPORT INFORMATION
  Report Type: 
  Country: None (occurrence: None)
  Receive Date: 20060707
  Receipt Date: 20060626
  Transmission Date: 20061208
  Serious: Yes (Death)
  Sender: FDA-Public Use
  Company Number: 2006BH011408

PATIENT
  Sex: Female

DRUGS (3)
  1. DEXAMETHASONE [Suspect]
     Indication: OVARIAN CANCER
     Dosage: 8 MG; 2X A DAY; UNK
  2. CISPLATIN [Suspect]
     Indication: OVARIAN CANCER
     Dosage: 75 MG/M**2
  3. TAXOTERE [Suspect]
     Indication: OVARIAN CANCER
     Dosage: 75 MG/M**2 ; 85 MG/M**2

REACTIONS (1)
  - GASTROINTESTINAL HAEMORRHAGE [None]
